FAERS Safety Report 10424499 (Version 2)
Quarter: 2014Q4

REPORT INFORMATION
  Report Type: Spontaneous
  Country: US (occurrence: None)
  Receive Date: 20140722
  Receipt Date: 20141020
  Transmission Date: 20150528
  Serious: No
  Sender: FDA-Public Use
  Company Number: AEGR000481

PATIENT
  Age: 49 Year
  Sex: Female
  Weight: 104.8 kg

DRUGS (5)
  1. LOVAZA [Concomitant]
     Active Substance: OMEGA-3-ACID ETHYL ESTERS
  2. JUXTAPID [Suspect]
     Active Substance: LOMITAPIDE MESYLATE
     Indication: TYPE IIA HYPERLIPIDAEMIA
     Route: 048
     Dates: start: 201308
  3. FISH OIL (FISH OIL) [Concomitant]
     Active Substance: FISH OIL
  4. VITAMIN D [Concomitant]
     Active Substance: CHOLECALCIFEROL
  5. MULTIVITAMIN (VITAMINS NOS) [Concomitant]
     Active Substance: VITAMINS

REACTIONS (7)
  - Bowel movement irregularity [None]
  - Hypersensitivity [None]
  - Flatulence [None]
  - Menstrual disorder [None]
  - Liver function test abnormal [None]
  - Diarrhoea [None]
  - Abdominal discomfort [None]

NARRATIVE: CASE EVENT DATE: 20140421
